FAERS Safety Report 14581307 (Version 1)
Quarter: 2018Q1

REPORT INFORMATION
  Report Type: Spontaneous
  Country: AR (occurrence: AR)
  Receive Date: 20180228
  Receipt Date: 20180228
  Transmission Date: 20180509
  Serious: Yes (Other)
  Sender: FDA-Public Use
  Company Number: PHHY2018AR022252

PATIENT
  Age: 7 Year
  Sex: Male

DRUGS (1)
  1. MEKINIST [Suspect]
     Active Substance: TRAMETINIB DIMETHYL SULFOXIDE
     Indication: MALIGNANT NEOPLASM OF EYE
     Dosage: 0.5 MG, UNK
     Route: 048

REACTIONS (3)
  - Cachexia [Unknown]
  - Neoplasm progression [Not Recovered/Not Resolved]
  - Product use issue [Unknown]
